FAERS Safety Report 7735291-2 (Version None)
Quarter: 2011Q3

REPORT INFORMATION
  Report Type: 
  Country: None (occurrence: None)
  Receive Date: 20110907
  Receipt Date: 20110906
  Transmission Date: 20111222
  Serious: Yes (Death, Other)
  Sender: FDA-Public Use
  Company Number: US-AMGEN-USASP2011038586

PATIENT
  Age: 71 Year
  Sex: Male

DRUGS (4)
  1. NPLATE [Suspect]
     Indication: IDIOPATHIC THROMBOCYTOPENIC PURPURA
     Dosage: 10 MUG/KG, UNK
     Dates: start: 20100616, end: 20101006
  2. NPLATE [Suspect]
     Indication: EVANS SYNDROME
  3. CORTICOSTEROIDS [Concomitant]
     Indication: IDIOPATHIC THROMBOCYTOPENIC PURPURA
  4. NPLATE [Suspect]
     Indication: THROMBOCYTOPENIA

REACTIONS (4)
  - THROMBOCYTOPENIA [None]
  - RESPIRATORY FAILURE [None]
  - PNEUMONIA [None]
  - THERAPEUTIC RESPONSE DECREASED [None]
